FAERS Safety Report 23998867 (Version 1)
Quarter: 2024Q2

REPORT INFORMATION
  Report Type: Spontaneous
  Country: PK (occurrence: PK)
  Receive Date: 20240621
  Receipt Date: 20240621
  Transmission Date: 20240716
  Serious: Yes (Death, Life-Threatening, Hospitalization)
  Sender: FDA-Public Use
  Company Number: PK-MLMSERVICE-20240603-PI085108-00082-1

PATIENT
  Age: 3 Year
  Sex: Male

DRUGS (9)
  1. CARBOPLATIN [Suspect]
     Active Substance: CARBOPLATIN
     Indication: Germ cell neoplasm
  2. ETOPOSIDE [Suspect]
     Active Substance: ETOPOSIDE
     Indication: Malignant mediastinal neoplasm
  3. VINCRISTINE [Suspect]
     Active Substance: VINCRISTINE
     Indication: Germ cell neoplasm
  4. SEVELAMER [Concomitant]
     Active Substance: SEVELAMER
     Indication: Tumour lysis syndrome
  5. RASBURICASE [Concomitant]
     Active Substance: RASBURICASE
     Indication: Hyperuricaemia
  6. ALLOPURINOL [Concomitant]
     Active Substance: ALLOPURINOL
     Indication: Tumour lysis syndrome
  7. ETOPOSIDE [Suspect]
     Active Substance: ETOPOSIDE
     Indication: Germ cell neoplasm
  8. CARBOPLATIN [Suspect]
     Active Substance: CARBOPLATIN
     Indication: Malignant mediastinal neoplasm
  9. VINCRISTINE [Suspect]
     Active Substance: VINCRISTINE
     Indication: Malignant mediastinal neoplasm

REACTIONS (5)
  - Febrile neutropenia [Fatal]
  - Septic shock [Fatal]
  - Escherichia sepsis [Fatal]
  - Escherichia bacteraemia [Fatal]
  - Multiple organ dysfunction syndrome [Fatal]
